FAERS Safety Report 16113720 (Version 2)
Quarter: 2019Q2

REPORT INFORMATION
  Report Type: Spontaneous
  Country: FI (occurrence: FI)
  Receive Date: 20190325
  Receipt Date: 20190410
  Transmission Date: 20190711
  Serious: Yes (Other)
  Sender: FDA-Public Use
  Company Number: FI-PFIZER INC-2019125881

PATIENT
  Age: 57 Year
  Sex: Female

DRUGS (6)
  1. DUROGESIC [Concomitant]
     Active Substance: FENTANYL
     Dosage: 62.5-75 UG
     Dates: start: 201901
  2. OXYNORM [Concomitant]
     Active Substance: OXYCODONE HYDROCHLORIDE
     Dosage: 10-20 MG AS NEEDED
     Dates: start: 201901
  3. IBRANCE [Suspect]
     Active Substance: PALBOCICLIB
     Dosage: 100 MG, UNK
     Dates: start: 20190307, end: 20190314
  4. IBRANCE [Suspect]
     Active Substance: PALBOCICLIB
     Indication: BREAST CANCER METASTATIC
     Dosage: 125 MG, UNK
     Dates: start: 20190101
  5. FULVESTRANT. [Concomitant]
     Active Substance: FULVESTRANT
     Indication: BREAST CANCER METASTATIC
     Dosage: UNK
     Dates: start: 20190101, end: 20190314
  6. ABSTRAL [Concomitant]
     Active Substance: FENTANYL CITRATE
     Dosage: 200 UG, AS NEEDED
     Dates: start: 201901

REACTIONS (9)
  - Cytopenia [Recovered/Resolved]
  - Platelet count decreased [Unknown]
  - Pathological fracture [Unknown]
  - Pain [Unknown]
  - Neutropenia [Recovered/Resolved]
  - Vomiting [Not Recovered/Not Resolved]
  - Nausea [Not Recovered/Not Resolved]
  - White blood cell count decreased [Unknown]
  - Neoplasm progression [Unknown]

NARRATIVE: CASE EVENT DATE: 2019
